FAERS Safety Report 5812970-5 (Version None)
Quarter: 2008Q3

REPORT INFORMATION
  Report Type: 
  Country: None (occurrence: None)
  Receive Date: 20080717
  Receipt Date: 20070830
  Transmission Date: 20090109
  Serious: No
  Sender: FDA-Public Use
  Company Number: A0677175A

PATIENT
  Age: 51 Year
  Sex: Female

DRUGS (2)
  1. NICORETTE [Suspect]
     Dates: start: 20070827, end: 20070827
  2. NICORETTE [Suspect]
     Dates: start: 20070827, end: 20070827

REACTIONS (2)
  - NAUSEA [None]
  - STOMACH DISCOMFORT [None]
